FAERS Safety Report 14545298 (Version 1)
Quarter: 2018Q1

REPORT INFORMATION
  Report Type: Spontaneous
  Country: NL (occurrence: NL)
  Receive Date: 20180218
  Receipt Date: 20180218
  Transmission Date: 20180509
  Serious: Yes (Death, Life-Threatening, Other)
  Sender: FDA-Public Use
  Company Number: PHHY2018NL026412

PATIENT

DRUGS (7)
  1. RITUXIMAB. [Suspect]
     Active Substance: RITUXIMAB
     Dosage: 375 MG/M2 DAY 5 ; CYCLICAL
     Route: 037
  2. CISPLATIN. [Suspect]
     Active Substance: CISPLATIN
     Indication: CENTRAL NERVOUS SYSTEM LYMPHOMA
     Dosage: DAYS 1 ; CYCLICAL
     Route: 065
  3. DEXAMETHASONE. [Suspect]
     Active Substance: DEXAMETHASONE
     Indication: CENTRAL NERVOUS SYSTEM LYMPHOMA
     Dosage: DAYS 1-4 ; CYCLICAL
     Route: 037
  4. METHOTREXATE. [Suspect]
     Active Substance: METHOTREXATE
     Indication: CENTRAL NERVOUS SYSTEM LYMPHOMA
     Dosage: DAY 15 ; CYCLICAL 3 G/M2
     Route: 037
  5. RITUXIMAB. [Suspect]
     Active Substance: RITUXIMAB
     Indication: CENTRAL NERVOUS SYSTEM LYMPHOMA
     Dosage: 10 MG, UNK
     Route: 037
  6. CYTARABINE. [Suspect]
     Active Substance: CYTARABINE
     Indication: CENTRAL NERVOUS SYSTEM LYMPHOMA
     Dosage: 2 G/M2 DAY 2 ; CYCLICAL
     Route: 037
  7. RITUXIMAB. [Suspect]
     Active Substance: RITUXIMAB
     Dosage: 25 MG, DAYS 4, 8, 11, AND 21
     Route: 037

REACTIONS (1)
  - Venoocclusive disease [Fatal]
